FAERS Safety Report 11408761 (Version 4)
Quarter: 2015Q4

REPORT INFORMATION
  Report Type: Report from Study
  Country: BR (occurrence: BR)
  Receive Date: 20150823
  Receipt Date: 20151005
  Transmission Date: 20160304
  Serious: Yes (Other)
  Sender: FDA-Public Use
  Company Number: PHHY2015BR099819

PATIENT
  Sex: Female
  Weight: 59 kg

DRUGS (4)
  1. DIOVAN TRIPLE [Suspect]
     Active Substance: AMLODIPINE BESYLATE\HYDROCHLOROTHIAZIDE\VALSARTAN
     Indication: HYPERTENSION
     Dosage: 1 DF (VALSARTAN 160 MG AND AMLODIPINE 5 MG AND HYDROCHLOROTHIAZIDE 12.5 MG), QD
     Route: 048
  2. ASA [Concomitant]
     Active Substance: ASPIRIN
     Indication: ANGIOPLASTY
     Dosage: 2 DF, QD (3 YEARS AGO)
  3. INSULIN HUMAN [Concomitant]
     Active Substance: INSULIN HUMAN
     Indication: PRODUCT USED FOR UNKNOWN INDICATION
     Dosage: 40 UNITS MORNING + 12 UNITS AT DINNER (STARTED 10 YEARS AGO), BID
     Route: 058
  4. METFORMIN [Concomitant]
     Active Substance: METFORMIN HYDROCHLORIDE
     Indication: DIABETES MELLITUS
     Dosage: 3 DF, QD (STARTED FROM 20 YEARS AGO)
     Route: 048

REACTIONS (7)
  - Cardiac disorder [Unknown]
  - Blood pressure increased [Unknown]
  - Ear pruritus [Recovering/Resolving]
  - Blood pressure fluctuation [Recovering/Resolving]
  - Ear discomfort [Recovering/Resolving]
  - Venous occlusion [Recovered/Resolved]
  - Fatigue [Unknown]
